FAERS Safety Report 23059726 (Version 1)
Quarter: 2023Q4

REPORT INFORMATION
  Report Type: Spontaneous
  Country: RS (occurrence: RS)
  Receive Date: 20231012
  Receipt Date: 20231012
  Transmission Date: 20240110
  Serious: Yes (Other)
  Sender: FDA-Public Use
  Company Number: RS-TEVA-2023-RS-2932631

PATIENT
  Age: 60 Year
  Sex: Male
  Weight: 66 kg

DRUGS (1)
  1. CARVEDILOL [Suspect]
     Active Substance: CARVEDILOL
     Indication: Hypertension
     Dosage: 25 MILLIGRAM DAILY;
     Route: 048
     Dates: start: 20101020, end: 20220916

REACTIONS (2)
  - Major depression [Recovering/Resolving]
  - Head titubation [Recovered/Resolved]

NARRATIVE: CASE EVENT DATE: 20211201
